FAERS Safety Report 8184641-4 (Version None)
Quarter: 2012Q1

REPORT INFORMATION
  Report Type: 
  Country: None (occurrence: None)
  Receive Date: 20120305
  Receipt Date: 20120223
  Transmission Date: 20120608
  Serious: Yes (Other)
  Sender: FDA-Public Use
  Company Number: MX-UCBSA-052349

PATIENT
  Age: 34 Year
  Sex: Female
  Weight: 70 kg

DRUGS (2)
  1. KEPPRA [Concomitant]
     Indication: EPILEPSY
     Route: 048
     Dates: start: 20100101
  2. VIMPAT [Suspect]
     Indication: EPILEPSY
     Route: 048
     Dates: start: 20111221, end: 20120221

REACTIONS (9)
  - GASTRITIS [None]
  - ERYTHEMA [None]
  - AMNESIA [None]
  - DIZZINESS [None]
  - ATTENTION DEFICIT/HYPERACTIVITY DISORDER [None]
  - COLITIS [None]
  - HEADACHE [None]
  - NAUSEA [None]
  - FATIGUE [None]
